FAERS Safety Report 6382145-2 (Version None)
Quarter: 2009Q3

REPORT INFORMATION
  Report Type: 
  Country: None (occurrence: None)
  Receive Date: 20090930
  Receipt Date: 20090922
  Transmission Date: 20100115
  Serious: Yes (Hospitalization)
  Sender: FDA-Public Use
  Company Number: PHHO2009US11771

PATIENT
  Sex: Male
  Weight: 121.4 kg

DRUGS (4)
  1. STI571/CGP57148B T35717+TAB [Suspect]
     Indication: NON-SMALL CELL LUNG CANCER
     Dosage: 600MG DAILY
     Route: 048
     Dates: start: 20090906, end: 20090909
  2. STI571/CGP57148B T35717+TAB [Suspect]
     Dosage: UNSPECIFIED
     Dates: start: 20090910, end: 20090912
  3. STI571/CGP57148B T35717+TAB [Suspect]
     Dosage: 600MG DAILY
     Route: 048
     Dates: start: 20090913
  4. TAXOL [Concomitant]

REACTIONS (8)
  - ASTHENIA [None]
  - BLOOD PRESSURE DECREASED [None]
  - DEHYDRATION [None]
  - DIARRHOEA [None]
  - HYPOPHAGIA [None]
  - NEUTROPENIA [None]
  - SUPRAVENTRICULAR TACHYCARDIA [None]
  - VENTRICULAR EXTRASYSTOLES [None]
